FAERS Safety Report 7177319-7 (Version None)
Quarter: 2010Q4

REPORT INFORMATION
  Report Type: 
  Country: None (occurrence: None)
  Receive Date: 20101220
  Receipt Date: 20101213
  Transmission Date: 20110411
  Serious: Yes (Death, Hospitalization, Other)
  Sender: FDA-Public Use
  Company Number: ZA-SANOFI-AVENTIS-2010SA058054

PATIENT
  Age: 69 Year
  Sex: Female
  Weight: 71 kg

DRUGS (12)
  1. TAXOTERE [Suspect]
     Indication: BREAST CANCER
     Route: 042
     Dates: start: 20100716, end: 20100716
  2. TAXOTERE [Suspect]
     Route: 042
     Dates: start: 20100806, end: 20100806
  3. PANADOL [Concomitant]
     Indication: ARTHRITIS
  4. PERINDOPRIL [Concomitant]
     Indication: HYPERTENSION
  5. SIMVASTATIN [Concomitant]
  6. ASPIRIN [Concomitant]
  7. VITAMINS [Concomitant]
  8. LOVAZA [Concomitant]
  9. SYNAP FORTE [Concomitant]
  10. DECASONE [Concomitant]
     Indication: PREMEDICATION
     Dates: start: 20100716
  11. KYTRIL [Concomitant]
     Indication: PREMEDICATION
     Dates: start: 20100716
  12. PHENERGAN [Concomitant]
     Indication: PREMEDICATION
     Dates: start: 20100716

REACTIONS (14)
  - AMMONIA INCREASED [None]
  - DIARRHOEA [None]
  - DYSPNOEA [None]
  - GASTROOESOPHAGEAL REFLUX DISEASE [None]
  - HEPATIC FAILURE [None]
  - HYPOTENSION [None]
  - LIVER FUNCTION TEST ABNORMAL [None]
  - MUCOSAL INFLAMMATION [None]
  - NEUTROPENIA [None]
  - OCULAR ICTERUS [None]
  - OXYGEN SATURATION DECREASED [None]
  - PYREXIA [None]
  - SEPSIS [None]
  - TUMOUR NECROSIS [None]
